FAERS Safety Report 11434399 (Version 1)
Quarter: 2015Q3

REPORT INFORMATION
  Report Type: Report from Study
  Country: FR (occurrence: FR)
  Receive Date: 20150831
  Receipt Date: 20150831
  Transmission Date: 20151125
  Serious: Yes (Other)
  Sender: FDA-Public Use
  Company Number: FR-BAYER-2015-405105

PATIENT
  Age: 39 Year
  Sex: Male

DRUGS (8)
  1. DACARBAZINE. [Suspect]
     Active Substance: DACARBAZINE
     Indication: LYMPHOCYTIC LYMPHOMA
  2. ETOPOSIDE [ETOPOSIDE] [Concomitant]
  3. DOXORUBICIN [Concomitant]
     Active Substance: DOXORUBICIN
     Indication: LYMPHOCYTIC LYMPHOMA
  4. VINCRISTINE [Concomitant]
     Active Substance: VINCRISTINE
     Indication: LYMPHOCYTIC LYMPHOMA
  5. CYTARABINE. [Concomitant]
     Active Substance: CYTARABINE
     Indication: LYMPHOCYTIC LYMPHOMA
  6. CISPLATIN. [Concomitant]
     Active Substance: CISPLATIN
     Indication: LYMPHOCYTIC LYMPHOMA
  7. CARMUSTINE [Concomitant]
     Active Substance: CARMUSTINE
     Indication: LYMPHOCYTIC LYMPHOMA
  8. CYCLOPHOSPHAMIDE. [Concomitant]
     Active Substance: CYCLOPHOSPHAMIDE
     Indication: LYMPHOCYTIC LYMPHOMA

REACTIONS (1)
  - Pulmonary veno-occlusive disease [None]
